FAERS Safety Report 9040763 (Version 1)
Quarter: 2013Q1

REPORT INFORMATION
  Report Type: Spontaneous
  Country: BR (occurrence: BR)
  Receive Date: 20130129
  Receipt Date: 20130129
  Transmission Date: 20140127
  Serious: Yes (Other)
  Sender: FDA-Public Use
  Company Number: BR-JNJFOC-20130111637

PATIENT
  Age: 63 Year
  Sex: Male
  Weight: 70 kg

DRUGS (5)
  1. HALDOL [Suspect]
     Indication: AGITATION
     Route: 048
     Dates: start: 20130111, end: 20130113
  2. ERANZ [Concomitant]
     Indication: FRONTOTEMPORAL DEMENTIA
     Route: 065
  3. CITALOPRAM [Concomitant]
     Indication: FRONTOTEMPORAL DEMENTIA
     Route: 065
  4. QUETIAPINE [Concomitant]
     Indication: FRONTOTEMPORAL DEMENTIA
     Route: 065
  5. ERANZ [Concomitant]
     Indication: FRONTOTEMPORAL DEMENTIA
     Route: 065

REACTIONS (2)
  - Paralysis [Recovering/Resolving]
  - Aphasia [Not Recovered/Not Resolved]
